FAERS Safety Report 7440124-8 (Version None)
Quarter: 2011Q2

REPORT INFORMATION
  Report Type: 
  Country: None (occurrence: None)
  Receive Date: 20110427
  Receipt Date: 20110308
  Transmission Date: 20111010
  Serious: No
  Sender: FDA-Public Use
  Company Number: US-JNJFOC-20110304501

PATIENT
  Age: 5 Decade
  Sex: Female
  Weight: 70 kg

DRUGS (4)
  1. VALPROIC ACID [Concomitant]
     Indication: ILL-DEFINED DISORDER
  2. INVEGA SUSTENNA [Suspect]
     Indication: SCHIZOAFFECTIVE DISORDER
     Route: 030
  3. ACETAMINOPHEN [Concomitant]
     Indication: ILL-DEFINED DISORDER
  4. RISPERIDONE [Concomitant]
     Indication: ILL-DEFINED DISORDER

REACTIONS (2)
  - PRURITUS GENERALISED [None]
  - PRODUCT QUALITY ISSUE [None]
